FAERS Safety Report 25210725 (Version 1)
Quarter: 2025Q2

REPORT INFORMATION
  Report Type: Spontaneous
  Country: US (occurrence: US)
  Receive Date: 20250417
  Receipt Date: 20250417
  Transmission Date: 20250716
  Serious: No
  Sender: Unknown Manufacturer
  Company Number: US-MELINTA THERAPEUTICS, LLC-US-MLNT-24-00311

PATIENT
  Sex: Female
  Weight: 81.64 kg

DRUGS (2)
  1. TOPROL XL [Suspect]
     Active Substance: METOPROLOL SUCCINATE
  2. TRUQAP [Concomitant]
     Active Substance: CAPIVASERTIB
     Indication: Breast cancer female
     Dosage: 400 MILLIGRAM, BID (TAKE 4 DAYS THEN 3 DAYS OFF)
     Route: 048
     Dates: start: 20240617

REACTIONS (1)
  - Drug hypersensitivity [Unknown]
